FAERS Safety Report 16064746 (Version 1)
Quarter: 2019Q1

REPORT INFORMATION
  Report Type: Spontaneous
  Country: IL (occurrence: IL)
  Receive Date: 20190312
  Receipt Date: 20190312
  Transmission Date: 20190418
  Serious: Yes (Other)
  Sender: FDA-Public Use
  Company Number: IL-ALLERGAN-1909451US

PATIENT
  Sex: Female

DRUGS (1)
  1. RISEDRONATE SODIUM UNK [Suspect]
     Active Substance: RISEDRONATE SODIUM
     Indication: OSTEOPOROSIS
     Dosage: UNK, Q MONTH
     Route: 048

REACTIONS (2)
  - Scleritis [Recovered/Resolved]
  - Orbital myositis [Recovered/Resolved]
